FAERS Safety Report 4877746-4 (Version None)
Quarter: 2006Q1

REPORT INFORMATION
  Report Type: 
  Country: None (occurrence: None)
  Receive Date: 20060111
  Receipt Date: 20050218
  Transmission Date: 20060701
  Serious: Yes (Hospitalization, Other)
  Sender: FDA-Public Use
  Company Number: US-MERCK-0502USA02663

PATIENT
  Age: 64 Year
  Sex: Female

DRUGS (18)
  1. VIOXX [Suspect]
     Indication: OSTEOARTHRITIS
     Route: 048
  2. LIPITOR [Concomitant]
     Route: 065
  3. CITRACAL CAPLETS + D [Concomitant]
     Route: 048
  4. PREMARIN [Concomitant]
     Route: 065
  5. XANAX [Concomitant]
     Route: 065
  6. ELAVIL [Concomitant]
     Route: 065
  7. CALCITRIOL [Concomitant]
     Route: 048
  8. SYNTHROID [Concomitant]
     Route: 065
  9. REGLAN [Concomitant]
     Route: 065
  10. PLAQUENIL [Concomitant]
     Route: 048
  11. DARVOCET-N 100 [Concomitant]
     Route: 065
  12. FLOVENT [Concomitant]
     Route: 065
  13. ALBUTEROL [Concomitant]
     Route: 065
  14. NEURONTIN [Concomitant]
     Route: 065
  15. OXYBUTYNIN [Concomitant]
     Route: 065
  16. VITAMINS (UNSPECIFIED) [Concomitant]
     Route: 065
  17. ASCORBIC ACID [Concomitant]
     Route: 065
  18. VITAMIN E [Concomitant]
     Route: 065

REACTIONS (32)
  - CARDIAC FAILURE [None]
  - CARDIOMYOPATHY [None]
  - CEREBROVASCULAR ACCIDENT [None]
  - CLOSTRIDIUM COLITIS [None]
  - DECUBITUS ULCER [None]
  - DELIRIUM [None]
  - ELECTROLYTE IMBALANCE [None]
  - ENCEPHALOPATHY [None]
  - HYPERCALCAEMIA [None]
  - HYPERKALAEMIA [None]
  - HYPOALBUMINAEMIA [None]
  - HYPOVOLAEMIA [None]
  - LEUKOCYTOSIS [None]
  - MALNUTRITION [None]
  - MENTAL STATUS CHANGES [None]
  - MYOCARDIAL INFARCTION [None]
  - NAUSEA [None]
  - PANCREATITIS [None]
  - PELVIC ABSCESS [None]
  - PELVIC FRACTURE [None]
  - PEPTIC ULCER [None]
  - PNEUMONIA PNEUMOCOCCAL [None]
  - RECTAL PERFORATION [None]
  - RENAL FAILURE ACUTE [None]
  - RENAL FAILURE CHRONIC [None]
  - SEPSIS [None]
  - SMALL INTESTINAL OBSTRUCTION [None]
  - STAPHYLOCOCCAL INFECTION [None]
  - URINARY INCONTINENCE [None]
  - URINARY TRACT INFECTION [None]
  - VENTRICULAR TACHYCARDIA [None]
  - VOMITING [None]
